FAERS Safety Report 9331703 (Version 1)
Quarter: 2013Q2

REPORT INFORMATION
  Report Type: Spontaneous
  Country: CN (occurrence: CN)
  Receive Date: 20130605
  Receipt Date: 20130605
  Transmission Date: 20140414
  Serious: Yes (Other)
  Sender: FDA-Public Use
  Company Number: CN-ASTRAZENECA-2013SE39884

PATIENT
  Age: 14022 Day
  Sex: Male

DRUGS (3)
  1. NEXIUM [Suspect]
     Route: 048
     Dates: start: 20120508, end: 20120523
  2. NEXIUM [Suspect]
     Route: 048
     Dates: start: 20120523, end: 20120614
  3. SELBEX [Concomitant]

REACTIONS (5)
  - Haemorrhagic erosive gastritis [Unknown]
  - Feeling hot [Unknown]
  - Somnolence [Unknown]
  - Dizziness [Unknown]
  - Malaise [Unknown]
